FAERS Safety Report 15745424 (Version 1)
Quarter: 2018Q4

REPORT INFORMATION
  Report Type: Spontaneous
  Country: US (occurrence: US)
  Receive Date: 20181220
  Receipt Date: 20181220
  Transmission Date: 20190205
  Serious: No
  Sender: FDA-Public Use
  Company Number: US-GE HEALTHCARE LIFE SCIENCES-2018CSU003550

PATIENT
  Sex: Male
  Weight: 58.5 kg

DRUGS (11)
  1. SALINE                             /00075401/ [Concomitant]
     Active Substance: SODIUM CHLORIDE
     Dosage: 20 CC^S / ML, SINGLE
  2. MULTI TABS 50+ [Concomitant]
  3. DATSCAN [Suspect]
     Active Substance: IODINE\IOFLUPANE I-123
     Indication: PRODUCT USED FOR UNKNOWN INDICATION
     Dosage: UNK MBQ, SINGLE
     Route: 042
  4. SERTRALINE HYDROCHLORIDE. [Concomitant]
     Active Substance: SERTRALINE HYDROCHLORIDE
     Dosage: 50 MG, UNK
  5. PRAVASTATIN SODIUM. [Concomitant]
     Active Substance: PRAVASTATIN SODIUM
     Dosage: 40 MG, UNK
  6. MELATONIN [Concomitant]
     Active Substance: MELATONIN
     Dosage: 10 MG, UNK
  7. ZOLPIDEM [Concomitant]
     Active Substance: ZOLPIDEM\ZOLPIDEM TARTRATE
     Dosage: 5 MG, UNK
  8. ASPIRIN                            /00002701/ [Concomitant]
     Active Substance: ASPIRIN
     Dosage: 81 MG, UNK
     Route: 065
  9. METOPROLOL SUCCINATE. [Concomitant]
     Active Substance: METOPROLOL SUCCINATE
     Dosage: 25 MG, UNK
  10. HYDROCHLOROTHIAZIDE. [Concomitant]
     Active Substance: HYDROCHLOROTHIAZIDE
     Dosage: 12.5 MG, UNK
  11. GALANTAMINE HYDROBROMIDE. [Concomitant]
     Active Substance: GALANTAMINE HYDROBROMIDE
     Dosage: 8 MG, UNK

REACTIONS (2)
  - Radioisotope scan abnormal [Recovered/Resolved]
  - No adverse event [Recovered/Resolved]
